FAERS Safety Report 23415911 (Version 1)
Quarter: 2024Q1

REPORT INFORMATION
  Report Type: Spontaneous
  Country: US (occurrence: US)
  Receive Date: 20240118
  Receipt Date: 20240118
  Transmission Date: 20240410
  Serious: Yes (Other)
  Sender: FDA-Public Use
  Company Number: US-MYLANLABS-2024M1004244

PATIENT
  Age: 48 Year
  Sex: Female

DRUGS (1)
  1. PRAZOSIN [Suspect]
     Active Substance: PRAZOSIN
     Indication: Hypertension
     Dosage: 8 MILLIGRAM, TID; RECEIVED PRAZOSIN TITRATED SLOWLY TO 8MG THREE TIMES DAILY
     Route: 065

REACTIONS (1)
  - Drug ineffective [Unknown]
